FAERS Safety Report 24927609 (Version 1)
Quarter: 2025Q1

REPORT INFORMATION
  Report Type: Spontaneous
  Country: US (occurrence: None)
  Receive Date: 20250205
  Receipt Date: 20250205
  Transmission Date: 20250408
  Serious: Yes (Hospitalization)
  Sender: FDA-CTU
  Company Number: None

PATIENT
  Age: 47 Year
  Sex: Female
  Weight: 53.2 kg

DRUGS (1)
  1. DARATUMUMAB\HYALURONIDASE-FIHJ [Suspect]
     Active Substance: DARATUMUMAB\HYALURONIDASE-FIHJ
     Dates: end: 20241230

REACTIONS (4)
  - Back pain [None]
  - Osteolysis [None]
  - Skeletal injury [None]
  - Bone marrow disorder [None]

NARRATIVE: CASE EVENT DATE: 20250127
